FAERS Safety Report 12608488 (Version 1)
Quarter: 2016Q3

REPORT INFORMATION
  Report Type: Spontaneous
  Country: PK (occurrence: PK)
  Receive Date: 20160729
  Receipt Date: 20160729
  Transmission Date: 20161109
  Serious: Yes (Death, Hospitalization)
  Sender: FDA-Public Use
  Company Number: PK-SA-2016SA131584

PATIENT
  Age: 50 Year
  Sex: Female

DRUGS (2)
  1. APIDRA [Suspect]
     Active Substance: INSULIN GLULISINE
     Indication: BLOOD GLUCOSE ABNORMAL
     Dosage: 20+20+20UNIT?S/TDS DOSE:20 UNIT(S)
     Route: 058
     Dates: start: 20160702, end: 20160724
  2. LANTUS [Suspect]
     Active Substance: INSULIN GLARGINE
     Indication: BLOOD GLUCOSE ABNORMAL
     Dosage: DOSE:36 UNIT(S)
     Route: 058
     Dates: start: 20160702, end: 20160724

REACTIONS (7)
  - Somnolence [Fatal]
  - Somnolence [Recovered/Resolved]
  - Pyrexia [Not Recovered/Not Resolved]
  - Headache [Unknown]
  - Blood glucose increased [Unknown]
  - Polyuria [Not Recovered/Not Resolved]
  - Cardiopulmonary failure [Fatal]

NARRATIVE: CASE EVENT DATE: 20160702
